FAERS Safety Report 25159962 (Version 1)
Quarter: 2025Q2

REPORT INFORMATION
  Report Type: Report from Study
  Country: US (occurrence: US)
  Receive Date: 20250404
  Receipt Date: 20250404
  Transmission Date: 20250716
  Serious: Yes (Other)
  Sender: ROCHE
  Company Number: US-ROCHE-10000244806

PATIENT
  Sex: Female

DRUGS (2)
  1. AVASTIN [Suspect]
     Active Substance: BEVACIZUMAB
     Indication: Retinal vein occlusion
     Route: 065
  2. AVASTIN [Suspect]
     Active Substance: BEVACIZUMAB
     Indication: Macular oedema

REACTIONS (4)
  - Off label use [Unknown]
  - Insomnia [Unknown]
  - Ocular discomfort [Unknown]
  - Cataract [Unknown]
